FAERS Safety Report 6532824-9 (Version None)
Quarter: 2009Q4

REPORT INFORMATION
  Report Type: 
  Country: None (occurrence: None)
  Receive Date: 20091231
  Receipt Date: 20091217
  Transmission Date: 20100525
  Serious: Yes (Death)
  Sender: FDA-Public Use
  Company Number: 156

PATIENT
  Age: 74 Year
  Sex: Male

DRUGS (1)
  1. FAZACLO ODT [Suspect]
     Indication: SCHIZOAFFECTIVE DISORDER
     Dosage: 300 MG PO DAILY
     Route: 048
     Dates: start: 20060803, end: 20071014

REACTIONS (3)
  - CARDIAC ARREST [None]
  - CHEST X-RAY ABNORMAL [None]
  - RESPIRATORY DISORDER [None]
